FAERS Safety Report 5747303-6 (Version None)
Quarter: 2008Q2

REPORT INFORMATION
  Report Type: 
  Country: None (occurrence: None)
  Receive Date: 20080523
  Receipt Date: 20080519
  Transmission Date: 20081010
  Serious: Yes (Death, Other)
  Sender: FDA-Public Use
  Company Number: CA-BRISTOL-MYERS SQUIBB COMPANY-14195978

PATIENT
  Age: 11 Year
  Sex: Male

DRUGS (5)
  1. DOXORUBICIN HCL [Suspect]
     Indication: ACUTE LYMPHOCYTIC LEUKAEMIA
  2. VINCRISTINE SULFATE [Suspect]
     Indication: ACUTE LYMPHOCYTIC LEUKAEMIA
  3. PREDNISONE TAB [Suspect]
     Indication: ACUTE LYMPHOCYTIC LEUKAEMIA
  4. ASPARAGINASE [Suspect]
     Indication: ACUTE LYMPHOCYTIC LEUKAEMIA
  5. METHOTREXATE [Suspect]
     Indication: ACUTE LYMPHOCYTIC LEUKAEMIA

REACTIONS (2)
  - NEUTROPENIA [None]
  - TRICHOSPORON INFECTION [None]
